FAERS Safety Report 20514357 (Version 3)
Quarter: 2022Q2

REPORT INFORMATION
  Report Type: Spontaneous
  Country: US (occurrence: US)
  Receive Date: 20220224
  Receipt Date: 20220606
  Transmission Date: 20220720
  Serious: Yes (Hospitalization)
  Sender: FDA-Public Use
  Company Number: US-VYERA PHARMACEUTICALS, LLC-2021VYE00027

PATIENT
  Age: 50 Year
  Sex: Female
  Weight: 88.435 kg

DRUGS (14)
  1. DARAPRIM [Suspect]
     Active Substance: PYRIMETHAMINE
     Indication: Cerebral toxoplasmosis
     Dosage: UNK
     Route: 048
     Dates: start: 20200826, end: 20210627
  2. DARAPRIM [Suspect]
     Active Substance: PYRIMETHAMINE
     Indication: HIV infection
     Dosage: 25 MG, 1X/DAY
     Route: 048
     Dates: start: 20210628
  3. AMLODIPINE [Concomitant]
     Active Substance: AMLODIPINE BESYLATE
     Dosage: 20 MG, 1X/DAY
  4. ALOGLIPTIN [Concomitant]
     Active Substance: ALOGLIPTIN
  5. ATORVASTATIN [Concomitant]
     Active Substance: ATORVASTATIN
     Dosage: 40 MG, NIGHTLY
  6. BIKTARVY [Concomitant]
     Active Substance: BICTEGRAVIR SODIUM\EMTRICITABINE\TENOFOVIR ALAFENAMIDE FUMARATE
     Dosage: 50-200-25MG ONCE DAILY
  7. GLIPIZIDE [Concomitant]
     Active Substance: GLIPIZIDE
  8. KEPPRA [Concomitant]
     Active Substance: LEVETIRACETAM
     Dosage: 500 MG, 2X/DAY
  9. LISINOPRIL [Concomitant]
     Active Substance: LISINOPRIL
     Dosage: 80 MG, 1X/DAY
     Route: 048
  10. METFORMIN [Concomitant]
     Active Substance: METFORMIN HYDROCHLORIDE
  11. BASAGLAR [Concomitant]
     Active Substance: INSULIN GLARGINE
  12. MEPRON [Concomitant]
     Active Substance: ATOVAQUONE
     Dosage: 750 MG, 2X/DAY WITH MEALS
  13. PANTOPRAZOLE [Concomitant]
     Active Substance: PANTOPRAZOLE
     Dosage: 40 MG, 1X/DAY
  14. HUMALOG [Concomitant]
     Active Substance: INSULIN LISPRO
     Dosage: 8 UNITS, 3X/DAY WITH MEALS
     Route: 058

REACTIONS (8)
  - Pneumocystis jirovecii pneumonia [Not Recovered/Not Resolved]
  - Headache [Not Recovered/Not Resolved]
  - Dehydration [Unknown]
  - Blood glucose increased [Unknown]
  - Off label use [Not Recovered/Not Resolved]
  - Cough [Not Recovered/Not Resolved]
  - Pyrexia [Not Recovered/Not Resolved]
  - Unevaluable event [Not Recovered/Not Resolved]

NARRATIVE: CASE EVENT DATE: 20200826
